FAERS Safety Report 4577810-3 (Version None)
Quarter: 2005Q1

REPORT INFORMATION
  Report Type: 
  Country: None (occurrence: None)
  Receive Date: 20050209
  Receipt Date: 20050120
  Transmission Date: 20050727
  Serious: Yes (Life-Threatening, Hospitalization)
  Sender: FDA-Public Use
  Company Number: USA041285659

PATIENT
  Age: 5 Year
  Sex: Female

DRUGS (1)
  1. HUMATROPE [Suspect]
     Indication: BODY HEIGHT BELOW NORMAL
     Dosage: 5 MG WEEK
     Dates: start: 20041012, end: 20041208

REACTIONS (3)
  - CARDIAC ARREST [None]
  - PNEUMONIA [None]
  - RESPIRATORY FAILURE [None]
